FAERS Safety Report 10610940 (Version 2)
Quarter: 2015Q4

REPORT INFORMATION
  Report Type: Spontaneous
  Country: US (occurrence: US)
  Receive Date: 20141126
  Receipt Date: 20151125
  Transmission Date: 20160304
  Serious: No
  Sender: FDA-Public Use
  Company Number: US-MALLINCKRODT-T201403122

PATIENT
  Age: 62 Year
  Sex: Female

DRUGS (4)
  1. GABLOFEN [Suspect]
     Active Substance: BACLOFEN
     Dosage: 500 MCG/ML AT 130.14 MCG/DAY
     Route: 037
  2. GABLOFEN [Suspect]
     Active Substance: BACLOFEN
     Dosage: 1000 MCG/ML UNK DOSE
     Route: 037
     Dates: end: 201407
  3. GABLOFEN [Suspect]
     Active Substance: BACLOFEN
     Dosage: 500 MCG/ML AT 109.97 MCG/DAY
     Dates: start: 20150728
  4. GABLOFEN [Suspect]
     Active Substance: BACLOFEN
     Indication: MUSCLE SPASTICITY
     Dosage: 2000 MCG/ML AT 110.0 MCG/DAY
     Route: 037
     Dates: start: 201407

REACTIONS (9)
  - Overdose [Recovered/Resolved]
  - Dyspnoea [Recovered/Resolved]
  - Urinary incontinence [Recovering/Resolving]
  - Hypotonia [Recovered/Resolved]
  - Musculoskeletal stiffness [Recovered/Resolved]
  - Drug ineffective [Recovered/Resolved]
  - Mental status changes [Recovering/Resolving]
  - Multiple sclerosis [Unknown]
  - Device failure [Recovered/Resolved]

NARRATIVE: CASE EVENT DATE: 201407
